FAERS Safety Report 4355101-3 (Version None)
Quarter: 2004Q2

REPORT INFORMATION
  Report Type: 
  Country: None (occurrence: None)
  Receive Date: 20040504
  Receipt Date: 20040415
  Transmission Date: 20050107
  Serious: Yes (Hospitalization, Other)
  Sender: FDA-Public Use
  Company Number: 200111721US

PATIENT
  Age: 62 Year
  Sex: Female

DRUGS (11)
  1. ARAVA [Suspect]
     Indication: RHEUMATOID ARTHRITIS
     Dosage: 100 MG QD PO
     Route: 048
     Dates: start: 20000401, end: 20000401
  2. ARAVA [Suspect]
     Indication: RHEUMATOID ARTHRITIS
     Dosage: 20 MG QD PO
     Route: 048
     Dates: start: 20000401, end: 20010213
  3. METHOTREXATE [Concomitant]
  4. VITAMINS NOS (VITAMINS NOS) [Concomitant]
  5. ATENOLOL [Concomitant]
  6. ESTROGENS CONJUGATED (PREMARIN) [Concomitant]
  7. LIPITOR [Concomitant]
  8. HYDROCHLOROTHIAZIDE [Concomitant]
  9. TYLENOL [Concomitant]
  10. HYDROXYCHLOROQUINE SULFATE (PLAQUENIL) [Concomitant]
  11. CELEBREX [Concomitant]

REACTIONS (14)
  - ABDOMINAL PAIN [None]
  - ANAEMIA POSTOPERATIVE [None]
  - ARTHRALGIA [None]
  - CHILLS [None]
  - CHOLELITHIASIS [None]
  - DRUG HYPERSENSITIVITY [None]
  - HEPATIC STEATOSIS [None]
  - NAUSEA [None]
  - OSTEOARTHRITIS [None]
  - PAIN IN EXTREMITY [None]
  - PROCEDURAL COMPLICATION [None]
  - PYREXIA [None]
  - VIRAL INFECTION [None]
  - VOMITING [None]
